FAERS Safety Report 7077403-2 (Version None)
Quarter: 2010Q4

REPORT INFORMATION
  Report Type: 
  Country: None (occurrence: None)
  Receive Date: 20101101
  Receipt Date: 20101026
  Transmission Date: 20110411
  Serious: Yes (Hospitalization)
  Sender: FDA-Public Use
  Company Number: US-B.I. PHARMACEUTICALS,INC./RIDGEFIELD-2010-BP-10115BP

PATIENT
  Age: 88 Year
  Sex: Male

DRUGS (10)
  1. SPIRIVA [Suspect]
     Indication: CHRONIC OBSTRUCTIVE PULMONARY DISEASE
     Dosage: 18 MCG
     Route: 055
     Dates: start: 20100601
  2. ASCORBIC ACID [Suspect]
  3. METOPROLOL [Concomitant]
     Indication: HYPERTENSION
  4. IMDUR [Concomitant]
     Indication: HYPERTENSION
  5. ASPIRIN [Concomitant]
     Dosage: 81 MG
  6. FUROSEMIDE [Concomitant]
  7. RANITIDINE [Concomitant]
  8. NIFEDICAL KL [Concomitant]
  9. SYMBICORT [Concomitant]
  10. VENTOLIN [Concomitant]

REACTIONS (4)
  - BLOOD PRESSURE INCREASED [None]
  - NAUSEA [None]
  - SKIN DISCOLOURATION [None]
  - VOMITING [None]
